FAERS Safety Report 5339014-6 (Version None)
Quarter: 2007Q2

REPORT INFORMATION
  Report Type: 
  Country: None (occurrence: None)
  Receive Date: 20070403
  Receipt Date: 20070131
  Transmission Date: 20071010
  Serious: Yes (Hospitalization, Disabling)
  Sender: FDA-Public Use
  Company Number: 2007-0011160

PATIENT
  Age: 48 Year
  Sex: Female
  Weight: 45.8133 kg

DRUGS (11)
  1. TRUVADA [Suspect]
     Indication: HIV INFECTION
     Dosage: 1 DOSAGE FORS, 1 IN 1 D, ORAL
     Route: 048
     Dates: start: 20051221, end: 20061212
  2. EFAVIRENZ [Concomitant]
  3. PAXIL [Concomitant]
  4. LASIX [Concomitant]
  5. FLUCONAZOLE [Concomitant]
  6. BACTRIM DS (BACTRIM /00086101/) (TABLET) [Concomitant]
  7. TRAZODINE (TRAZODINE) [Concomitant]
  8. PRENATAL VITAMINS (PRENATAL VITAMINS /01549301/) (TABLET) [Concomitant]
  9. HYDROCODONE W/APAP (PROCET /01554201/) (TABLET) [Concomitant]
  10. CLONAZEPAM [Concomitant]
  11. MEGACE [Concomitant]

REACTIONS (2)
  - RENAL FAILURE [None]
  - TUBULOINTERSTITIAL NEPHRITIS [None]
